FAERS Safety Report 10149059 (Version 1)
Quarter: 2014Q2

REPORT INFORMATION
  Report Type: Spontaneous
  Country: US (occurrence: None)
  Receive Date: 20140430
  Receipt Date: 20140430
  Transmission Date: 20141212
  Serious: Yes (Hospitalization)
  Sender: FDA-Public Use
  Company Number: None

PATIENT
  Age: 76 Year
  Sex: Male

DRUGS (8)
  1. CARBOPLATIN [Suspect]
     Dates: end: 20131203
  2. PACLITAXEL (TAXOL) [Suspect]
     Dates: end: 20131203
  3. AMLODIPINE [Concomitant]
  4. ATORVASTATIN [Concomitant]
  5. IRON SULFATE [Concomitant]
  6. PRILOSEC [Concomitant]
  7. PROSCAR [Concomitant]
  8. WARFARIN [Concomitant]

REACTIONS (5)
  - Cerebrovascular accident [None]
  - Dysarthria [None]
  - Somnolence [None]
  - Brain oedema [None]
  - Dysphagia [None]
